FAERS Safety Report 9262814 (Version 2)
Quarter: 2013Q2

REPORT INFORMATION
  Report Type: Spontaneous
  Country: US (occurrence: None)
  Receive Date: 20130419
  Receipt Date: 20130425
  Transmission Date: 20140414
  Serious: Yes (Hospitalization)
  Sender: FDA-Public Use
  Company Number: 2013035413

PATIENT
  Sex: Male
  Weight: 63.5 kg

DRUGS (3)
  1. HIZENTRA [Suspect]
     Indication: IMMUNODEFICIENCY COMMON VARIABLE
     Route: 058
  2. EPI-PEN (EPINEPHRINE) [Concomitant]
  3. L-M-X (LIDOCAINE) [Concomitant]

REACTIONS (3)
  - Pyrexia [None]
  - Headache [None]
  - Meningitis [None]
